FAERS Safety Report 16755657 (Version 1)
Quarter: 2019Q3

REPORT INFORMATION
  Report Type: Spontaneous
  Country: US (occurrence: US)
  Receive Date: 20190829
  Receipt Date: 20190829
  Transmission Date: 20191005
  Serious: Yes (Hospitalization, Other)
  Sender: FDA-Public Use
  Company Number: US-PFIZER INC-2019365568

PATIENT
  Age: 64 Year
  Sex: Female
  Weight: 73.94 kg

DRUGS (1)
  1. RELPAX [Suspect]
     Active Substance: ELETRIPTAN HYDROBROMIDE
     Indication: MIGRAINE
     Dosage: UNK

REACTIONS (4)
  - Cough [Unknown]
  - Recalled product administered [Unknown]
  - Lung infection [Unknown]
  - Rib fracture [Unknown]
